FAERS Safety Report 6663283-3 (Version None)
Quarter: 2010Q2

REPORT INFORMATION
  Report Type: 
  Country: None (occurrence: None)
  Receive Date: 20100401
  Receipt Date: 20100322
  Transmission Date: 20101027
  Serious: Yes (Death, Hospitalization, Other)
  Sender: FDA-Public Use
  Company Number: US-TEVA-229081USA

PATIENT
  Age: 65 Year
  Sex: Female

DRUGS (3)
  1. METHOTREXATE [Suspect]
  2. ABATCEPT [Suspect]
     Indication: RHEUMATOID ARTHRITIS
     Dosage: 7 DOUBLE BLIND MEDICATION DOSES, SQ AND IV
  3. PLACEBO [Suspect]

REACTIONS (1)
  - GALLBLADDER CANCER STAGE III [None]
